FAERS Safety Report 18340935 (Version 1)
Quarter: 2020Q4

REPORT INFORMATION
  Report Type: Spontaneous
  Country: US (occurrence: US)
  Receive Date: 20201003
  Receipt Date: 20201003
  Transmission Date: 20210113
  Serious: No
  Sender: FDA-Public Use
  Company Number: US-LUPIN PHARMACEUTICALS INC.-2020-00835

PATIENT
  Age: 51 Year
  Sex: Female
  Weight: 40.82 kg

DRUGS (1)
  1. CEPHALEXIN CAPSULES USP, 500 MG [Suspect]
     Active Substance: CEPHALEXIN
     Indication: URINARY TRACT INFECTION
     Dosage: UNK UNK, BID
     Route: 048
     Dates: start: 20200208

REACTIONS (2)
  - Product storage error [Unknown]
  - Polyuria [Unknown]

NARRATIVE: CASE EVENT DATE: 20200208
